FAERS Safety Report 4289539-X (Version None)
Quarter: 2004Q1

REPORT INFORMATION
  Report Type: 
  Country: None (occurrence: None)
  Receive Date: 20040203
  Receipt Date: 20030428
  Transmission Date: 20041129
  Serious: Yes (Hospitalization, Other)
  Sender: FDA-Public Use
  Company Number: 200317138BWH

PATIENT
  Age: 39 Year
  Sex: Female
  Weight: 49.8957 kg

DRUGS (5)
  1. AVELOX [Suspect]
     Indication: PNEUMONIA
     Dosage: SEE IMAGE
     Route: 048
     Dates: start: 20030201
  2. AVELOX [Suspect]
     Indication: SINUSITIS
     Dosage: SEE IMAGE
     Route: 048
     Dates: start: 20030201
  3. AVELOX [Suspect]
     Indication: PNEUMONIA
     Dosage: SEE IMAGE
     Route: 048
     Dates: start: 20030325
  4. AVELOX [Suspect]
     Indication: SINUSITIS
     Dosage: SEE IMAGE
     Route: 048
     Dates: start: 20030325
  5. WELLBUTRIN [Concomitant]

REACTIONS (7)
  - ANAPHYLACTIC SHOCK [None]
  - HYPERSENSITIVITY [None]
  - HYPOTENSION [None]
  - OROPHARYNGEAL SWELLING [None]
  - PARAESTHESIA [None]
  - PRURITUS [None]
  - RASH [None]
